FAERS Safety Report 22144101 (Version 1)
Quarter: 2023Q1

REPORT INFORMATION
  Report Type: Report from Study
  Country: CH (occurrence: CH)
  Receive Date: 20230327
  Receipt Date: 20230327
  Transmission Date: 20230418
  Serious: Yes (Other)
  Sender: FDA-Public Use
  Company Number: CH-ABBVIE-4345903

PATIENT
  Age: 83 Year
  Sex: Female

DRUGS (8)
  1. CARBIDOPA\LEVODOPA [Suspect]
     Active Substance: CARBIDOPA\LEVODOPA
     Indication: Parkinson^s disease
     Dosage: MD 6.0ML, CRD 2.7 ML/H, ED 1.0ML; CRN 1.0 ML/H FREQUENCY TEXT: 24H THERAPY
     Route: 050
     Dates: start: 20220713
  2. CARBIDOPA\LEVODOPA [Suspect]
     Active Substance: CARBIDOPA\LEVODOPA
     Dosage: FREQUENCY TEXT: 24H THERAPY
     Route: 050
     Dates: start: 20220511
  3. CARBIDOPA\LEVODOPA [Suspect]
     Active Substance: CARBIDOPA\LEVODOPA
     Dosage: MD 6.0ML, CRD 2.7 ML/H, ED 1.0ML; CRN 1.0 ML/H FREQUENCY TEXT: 24H THERAPY
     Route: 050
     Dates: start: 20220603, end: 20220607
  4. CARBIDOPA\LEVODOPA [Suspect]
     Active Substance: CARBIDOPA\LEVODOPA
     Dosage: MD 6.0ML, CRD 2.5 ML/H, ED 1.0ML; CRN 1.0 ML/H FREQUENCY TEXT: 24H THERAPY
     Route: 050
     Dates: start: 20220607, end: 20220713
  5. CARBIDOPA\LEVODOPA [Suspect]
     Active Substance: CARBIDOPA\LEVODOPA
     Dosage: MD 2.0ML, CRD 1.7 ML/H, ED 1.0ML; CRN 1.0 ML/H; FREQUENCY TEXT: 24H THERAPY
     Route: 050
     Dates: start: 20220511, end: 20220520
  6. CARBIDOPA\LEVODOPA [Suspect]
     Active Substance: CARBIDOPA\LEVODOPA
     Dosage: MD 5.0ML, CRD 2.3 ML/H, ED 1.0ML; CRN 1.0 ML/H; FREQUENCY TEXT: 24H THERAPY
     Route: 050
     Dates: start: 20220520, end: 20220523
  7. CARBIDOPA\LEVODOPA [Suspect]
     Active Substance: CARBIDOPA\LEVODOPA
     Dosage: MD 6.0ML, CRD 2.9 ML/H, ED 1.0ML; CRN 1.0 ML/H FREQUENCY TEXT: 24H THERAPY
     Route: 050
     Dates: start: 20220523, end: 20220603
  8. NEUPRO [Concomitant]
     Active Substance: ROTIGOTINE
     Indication: Parkinson^s disease
     Dosage: 1X 4MG/24H
     Dates: start: 20220510

REACTIONS (5)
  - Unresponsive to stimuli [Not Recovered/Not Resolved]
  - Therapeutic product effect decreased [Not Recovered/Not Resolved]
  - Device dislocation [Not Recovered/Not Resolved]
  - Device issue [Recovered/Resolved]
  - Freezing phenomenon [Not Recovered/Not Resolved]

NARRATIVE: CASE EVENT DATE: 20230316
